FAERS Safety Report 15642603 (Version 2)
Quarter: 2018Q4

REPORT INFORMATION
  Report Type: Report from Study
  Country: CA (occurrence: CA)
  Receive Date: 20181121
  Receipt Date: 20181206
  Transmission Date: 20190205
  Serious: Yes (Life-Threatening, Other)
  Sender: FDA-Public Use
  Company Number: CA-AMGEN-CANSL2018163435

PATIENT
  Age: 79 Year
  Sex: Male
  Weight: 67.57 kg

DRUGS (1)
  1. PROLIA [Suspect]
     Active Substance: DENOSUMAB
     Indication: OSTEOPOROSIS
     Dosage: 1 ML, UNK
     Route: 058

REACTIONS (2)
  - B-cell lymphoma [Not Recovered/Not Resolved]
  - Gastric cancer [Unknown]
